FAERS Safety Report 11220386 (Version 1)
Quarter: 2015Q2

REPORT INFORMATION
  Report Type: Spontaneous
  Country: US (occurrence: None)
  Receive Date: 20150625
  Receipt Date: 20150625
  Transmission Date: 20150821
  Serious: No
  Sender: FDA-Public Use
  Company Number: None

PATIENT

DRUGS (2)
  1. VITAMIN D [Suspect]
     Active Substance: CHOLECALCIFEROL
  2. VITAMIN D [Suspect]
     Active Substance: CHOLECALCIFEROL

REACTIONS (1)
  - Intercepted drug dispensing error [None]
